FAERS Safety Report 21028144 (Version 1)
Quarter: 2022Q2

REPORT INFORMATION
  Report Type: Spontaneous
  Country: None (occurrence: ES)
  Receive Date: 20220630
  Receipt Date: 20220630
  Transmission Date: 20220720
  Serious: Yes (Hospitalization)
  Sender: FDA-Public Use
  Company Number: ES-B.Braun Medical Inc.-2130437

PATIENT
  Age: 58 Year
  Sex: Female

DRUGS (5)
  1. CEFUROXIME SODIUM [Suspect]
     Active Substance: CEFUROXIME SODIUM
  2. ACETAMINOPHEN [Suspect]
     Active Substance: ACETAMINOPHEN
  3. OMEPRAZOLE [Suspect]
     Active Substance: OMEPRAZOLE
  4. DEXKETOPROFEN [Suspect]
     Active Substance: DEXKETOPROFEN
  5. ENOXAPARIN [Suspect]
     Active Substance: ENOXAPARIN

REACTIONS (2)
  - Hyperbilirubinaemia [Recovered/Resolved]
  - Hepatic cytolysis [Recovered/Resolved]
